FAERS Safety Report 7794639-3 (Version None)
Quarter: 2011Q4

REPORT INFORMATION
  Report Type: 
  Country: None (occurrence: None)
  Receive Date: 20111004
  Receipt Date: 20110928
  Transmission Date: 20120403
  Serious: Yes (Hospitalization)
  Sender: FDA-Public Use
  Company Number: US-ROCHE-786279

PATIENT
  Sex: Female
  Weight: 94.3 kg

DRUGS (10)
  1. COPEGUS [Suspect]
     Dosage: 400 MG QD
     Route: 048
  2. METFORMIN HCL [Concomitant]
  3. SYNTHROID [Concomitant]
  4. ANORECTAL PREPARATIONS [Concomitant]
     Dosage: FREQUENCY: AS NECESSARY.
  5. TRIAMCINOLONE [Concomitant]
     Dosage: AS NECESSARY
  6. IMODIUM [Concomitant]
     Dosage: DOSE: 2 MG AS REQUIRED
  7. PEG-INTERFERON ALFA 2A [Suspect]
     Indication: HEPATITIS C
     Dosage: INTERRUPTED
     Route: 058
  8. COPEGUS [Suspect]
     Indication: HEPATITIS C
     Route: 048
  9. TELAPREVIR [Suspect]
     Indication: HEPATITIS C
     Route: 048
  10. LEXAPRO [Concomitant]

REACTIONS (8)
  - ASTHENIA [None]
  - VERTIGO [None]
  - ANAEMIA [None]
  - FALL [None]
  - VIITH NERVE PARALYSIS [None]
  - HEMIPARESIS [None]
  - DISORIENTATION [None]
  - PARAESTHESIA [None]
